FAERS Safety Report 9660334 (Version 2)
Quarter: 2013Q4

REPORT INFORMATION
  Report Type: Spontaneous
  Country: US (occurrence: US)
  Receive Date: 20131031
  Receipt Date: 20131031
  Transmission Date: 20140711
  Serious: Yes (Death, Other)
  Sender: FDA-Public Use
  Company Number: US-NAPPMUNDI-USA-2011-0067375

PATIENT
  Age: 17 Year
  Sex: Female
  Weight: 54.88 kg

DRUGS (9)
  1. OXYCODONE HYDROCHLORIDE (SIMILAR TO NDA 20-553) [Suspect]
     Indication: DRUG ABUSE
  2. HYDROCODONE [Suspect]
     Indication: PRODUCT USED FOR UNKNOWN INDICATION
  3. MEPROBAMATE [Suspect]
     Indication: PRODUCT USED FOR UNKNOWN INDICATION
  4. ACETAMINOPHEN [Concomitant]
     Indication: PRODUCT USED FOR UNKNOWN INDICATION
  5. PROMETHAZINE [Concomitant]
     Indication: PRODUCT USED FOR UNKNOWN INDICATION
  6. DIAZEPAM [Concomitant]
     Indication: PRODUCT USED FOR UNKNOWN INDICATION
  7. CAFFEINE [Concomitant]
     Indication: PRODUCT USED FOR UNKNOWN INDICATION
  8. COTININE [Concomitant]
     Indication: PRODUCT USED FOR UNKNOWN INDICATION
  9. THEOBROMINE [Concomitant]
     Indication: PRODUCT USED FOR UNKNOWN INDICATION

REACTIONS (2)
  - Accidental overdose [Fatal]
  - Drug abuse [Unknown]
